FAERS Safety Report 7269949-9 (Version None)
Quarter: 2011Q1

REPORT INFORMATION
  Report Type: 
  Country: None (occurrence: None)
  Receive Date: 20110202
  Receipt Date: 20110119
  Transmission Date: 20110831
  Serious: Yes (Hospitalization, Other)
  Sender: FDA-Public Use
  Company Number: JP-ROCHE-660282

PATIENT
  Sex: Male
  Weight: 79.1 kg

DRUGS (29)
  1. PREDONINE [Suspect]
     Route: 048
     Dates: start: 20090825, end: 20090908
  2. PREDONINE [Suspect]
     Dosage: NOTE: 20MG X 1215MG X 2. STOP DATE REPORTED AS 2009.
     Route: 048
     Dates: start: 20090909
  3. PREDONINE [Suspect]
     Dosage: NOTE: DIVIDED INTO 3 DOSES.
     Route: 048
     Dates: start: 20090101, end: 20091213
  4. PREDONINE [Suspect]
     Dosage: NOTE: DIVIDED INTO 3 DOSES
     Route: 048
     Dates: start: 20100608, end: 20100802
  5. TOCILIZUMAB [Suspect]
     Route: 041
     Dates: start: 20091215, end: 20100316
  6. TOCILIZUMAB [Suspect]
     Route: 041
     Dates: start: 20100810, end: 20101012
  7. PREDONINE [Suspect]
     Dosage: NOTE: DIVIDED INTO  3 DOSES
     Route: 048
     Dates: start: 20091221, end: 20100104
  8. TOCILIZUMAB [Suspect]
     Route: 041
     Dates: start: 20100706, end: 20100720
  9. PREDONINE [Suspect]
     Dosage: NOTE: DIVIDED INTO THREE DOSES
     Route: 048
     Dates: start: 20100112, end: 20100607
  10. NEORAL [Suspect]
     Indication: CASTLEMAN'S DISEASE
     Dosage: FORM: PERORAL AGENT
     Route: 048
     Dates: end: 20090706
  11. ENDOXAN [Concomitant]
     Route: 048
     Dates: start: 20100119
  12. TOCILIZUMAB [Suspect]
     Route: 041
     Dates: start: 20090915, end: 20091207
  13. TOCILIZUMAB [Suspect]
     Indication: CASTLEMAN'S DISEASE
     Route: 041
     Dates: start: 20090619, end: 20090811
  14. TOCILIZUMAB [Suspect]
     Route: 041
     Dates: start: 20100330, end: 20100413
  15. PREDONINE [Suspect]
     Dosage: NOTE: DIVIDED INTO 3 DOSES
     Route: 048
     Dates: start: 20101207
  16. PREDONINE [Suspect]
     Route: 048
     Dates: start: 20090513, end: 20090824
  17. PREDONINE [Suspect]
     Route: 048
     Dates: start: 20091214, end: 20091220
  18. NEORAL [Suspect]
     Dosage: STOP DATE REPORTED AS 2009. FORM: PERORAL AGENT
     Route: 048
     Dates: start: 20090812
  19. ALDACTONE [Concomitant]
     Route: 048
     Dates: start: 20100128, end: 20100421
  20. TOCILIZUMAB [Suspect]
     Route: 041
     Dates: start: 20090818, end: 20090901
  21. TOCILIZUMAB [Suspect]
     Route: 041
     Dates: start: 20100427, end: 20100622
  22. PREDONINE [Suspect]
     Dosage: NOTE: 7.5MGX175MGX2
     Route: 048
     Dates: start: 20090408, end: 20090512
  23. TOCILIZUMAB [Suspect]
     Route: 041
     Dates: start: 20101109, end: 20110104
  24. PREDONINE [Suspect]
     Indication: CASTLEMAN'S DISEASE
     Dosage: NOTE: 10MG X 115MG X 2.
     Route: 048
     Dates: end: 20090407
  25. PREDONINE [Suspect]
     Dosage: NOTE: DIVIDED INTO 3 DOSES
     Route: 048
     Dates: start: 20100105, end: 20100111
  26. PREDONINE [Suspect]
     Route: 048
     Dates: start: 20100803, end: 20101206
  27. NEORAL [Suspect]
     Dosage: FORM: PERORAL AGENT
     Route: 048
     Dates: start: 20090707, end: 20090728
  28. NEORAL [Suspect]
     Dosage: FORM: PERORAL AGENT
     Route: 048
     Dates: start: 20090729, end: 20090811
  29. NEORAL [Suspect]
     Route: 048
     Dates: start: 20090101, end: 20091213

REACTIONS (10)
  - PLATELET COUNT DECREASED [None]
  - PRURITUS [None]
  - PYREXIA [None]
  - SEPSIS [None]
  - HYPOGAMMAGLOBULINAEMIA [None]
  - GYNAECOMASTIA [None]
  - ASCITES [None]
  - COLITIS ULCERATIVE [None]
  - HEPATIC FUNCTION ABNORMAL [None]
  - DIABETES MELLITUS [None]
